FAERS Safety Report 24115772 (Version 2)
Quarter: 2024Q3

REPORT INFORMATION
  Report Type: Spontaneous
  Country: HU (occurrence: HU)
  Receive Date: 20240721
  Receipt Date: 20240725
  Transmission Date: 20241016
  Serious: Yes (Other)
  Sender: BAYER
  Company Number: HU-BAYER-2024A100325

PATIENT

DRUGS (2)
  1. CIPROFLOXACIN [Suspect]
     Active Substance: CIPROFLOXACIN
  2. LEVOFLOXACIN [Suspect]
     Active Substance: LEVOFLOXACIN

REACTIONS (30)
  - Exophthalmos [Recovered/Resolved]
  - Angina pectoris [Recovered/Resolved]
  - Brain injury [None]
  - Suicidal ideation [None]
  - Burning sensation [None]
  - Hypoaesthesia [Not Recovered/Not Resolved]
  - Spinal pain [None]
  - Hyperacusis [None]
  - Eye pain [None]
  - Pruritus [Recovered/Resolved]
  - Neck pain [None]
  - Genital burning sensation [None]
  - Dysstasia [None]
  - Palpitations [None]
  - Sleep disorder [Recovered/Resolved]
  - Fear [Recovered/Resolved]
  - Illness [None]
  - Headache [None]
  - Dyspepsia [None]
  - Gastrointestinal disorder [None]
  - Weight decreased [None]
  - Skin exfoliation [None]
  - Myalgia [None]
  - Fatigue [None]
  - Back pain [None]
  - Arthralgia [None]
  - Disturbance in attention [None]
  - Tinnitus [None]
  - Nervous system disorder [None]
  - Breast pain [None]
